FAERS Safety Report 4828122-1 (Version None)
Quarter: 2005Q4

REPORT INFORMATION
  Report Type: 
  Country: None (occurrence: None)
  Receive Date: 20051110
  Receipt Date: 20051101
  Transmission Date: 20060501
  Serious: Yes (Other)
  Sender: FDA-Public Use
  Company Number: 2005149695

PATIENT
  Age: 39 Year
  Sex: Female
  Weight: 68.0396 kg

DRUGS (2)
  1. UNISOM [Suspect]
     Indication: SLEEP DISORDER
     Dosage: 6-8 SLEEPGELS AT LEAST TWICE A DAY, ORAL
     Route: 048
     Dates: start: 20050201
  2. DRUG (DRUG,) [Concomitant]

REACTIONS (5)
  - DIZZINESS [None]
  - FACE OEDEMA [None]
  - GENERALISED OEDEMA [None]
  - LOSS OF CONSCIOUSNESS [None]
  - WEIGHT INCREASED [None]
